FAERS Safety Report 5123756-1 (Version None)
Quarter: 2006Q3

REPORT INFORMATION
  Report Type: 
  Country: None (occurrence: None)
  Receive Date: 20060811
  Receipt Date: 20060712
  Transmission Date: 20061208
  Serious: Yes (Other)
  Sender: FDA-Public Use
  Company Number: S06-USA-02727-01

PATIENT
  Age: 75 Year
  Sex: Male

DRUGS (3)
  1. NAMENDA [Suspect]
  2. ARICEPT [Suspect]
  3. MULTIPLE MEDICATIONS (NOS) [Concomitant]

REACTIONS (1)
  - CONVULSION [None]
